FAERS Safety Report 10199905 (Version 7)
Quarter: 2017Q1

REPORT INFORMATION
  Report Type: Spontaneous
  Country: US (occurrence: US)
  Receive Date: 20140527
  Receipt Date: 20170217
  Transmission Date: 20170428
  Serious: Yes (Hospitalization, Disabling, Other)
  Sender: FDA-Public Use
  Company Number: US-009507513-1405USA011434

PATIENT
  Sex: Female
  Weight: 68.93 kg

DRUGS (3)
  1. ALENDRONATE SODIUM. [Suspect]
     Active Substance: ALENDRONATE SODIUM
     Indication: OSTEOPOROSIS
     Dosage: 70 MG, QW
     Route: 048
     Dates: start: 200802, end: 201404
  2. PRILOSEC [Concomitant]
     Active Substance: OMEPRAZOLE MAGNESIUM
     Dosage: 20 MG, QD
     Dates: start: 2000, end: 2014
  3. FOSAMAX [Suspect]
     Active Substance: ALENDRONATE SODIUM
     Indication: OSTEOPOROSIS
     Dosage: 70 MG, QW
     Route: 048
     Dates: start: 199909, end: 200802

REACTIONS (33)
  - Anxiety [Unknown]
  - Hypercholesterolaemia [Unknown]
  - Hypoalbuminaemia [Unknown]
  - Osteosclerosis [Unknown]
  - Libido decreased [Unknown]
  - Bursitis [Unknown]
  - Osteoporosis [Not Recovered/Not Resolved]
  - Hypertension [Unknown]
  - Lumbosacral radiculopathy [Unknown]
  - Asthenia [Unknown]
  - Arthralgia [Unknown]
  - Stress [Unknown]
  - Femur fracture [Recovered/Resolved]
  - Pain in extremity [Unknown]
  - Lumbar spinal stenosis [Unknown]
  - Cough [Not Recovered/Not Resolved]
  - Gastrooesophageal reflux disease [Unknown]
  - Back pain [Not Recovered/Not Resolved]
  - Scoliosis [Unknown]
  - Drug dependence [Unknown]
  - Upper-airway cough syndrome [Unknown]
  - Vitamin D deficiency [Unknown]
  - Muscle spasms [Unknown]
  - Anxiety disorder [Unknown]
  - Depression [Unknown]
  - Insomnia [Unknown]
  - Migraine [Not Recovered/Not Resolved]
  - Anaemia [Unknown]
  - Tachycardia [Unknown]
  - Femur fracture [Not Recovered/Not Resolved]
  - Osteopenia [Unknown]
  - Ankle fracture [Unknown]
  - Hysterectomy [Unknown]

NARRATIVE: CASE EVENT DATE: 2000
